FAERS Safety Report 9350516 (Version 2)
Quarter: 2013Q3

REPORT INFORMATION
  Report Type: Spontaneous
  Country: US (occurrence: US)
  Receive Date: 20130617
  Receipt Date: 20130819
  Transmission Date: 20140515
  Serious: No
  Sender: FDA-Public Use
  Company Number: US-PFIZER INC-2013178013

PATIENT
  Sex: Male
  Weight: 68.93 kg

DRUGS (4)
  1. LATANOPROST [Suspect]
     Indication: GLAUCOMA
     Dosage: 1 GTT, 1X/DAY (IN THE EVENING)
     Route: 047
  2. LATANOPROST [Suspect]
     Dosage: 1 GTT, 1X/DAY (EVENING)
     Route: 047
  3. LATANOPROST [Suspect]
     Dosage: UNK
  4. TIMOLOL MALEATE [Suspect]
     Indication: GLAUCOMA
     Dosage: UNK

REACTIONS (3)
  - Incorrect dose administered [Unknown]
  - Vision blurred [Unknown]
  - Product quality issue [Unknown]
